FAERS Safety Report 4673260-X (Version None)
Quarter: 2005Q2

REPORT INFORMATION
  Report Type: 
  Country: None (occurrence: None)
  Receive Date: 20050525
  Receipt Date: 20050511
  Transmission Date: 20051028
  Serious: Yes (Hospitalization)
  Sender: FDA-Public Use
  Company Number: DE-AMGEN-UK132724

PATIENT
  Sex: Female
  Weight: 54 kg

DRUGS (5)
  1. ARANESP [Suspect]
     Indication: DIALYSIS
     Route: 042
     Dates: start: 20040420
  2. DIURETICS [Concomitant]
     Route: 065
  3. ANTIHYPERTENSIVES [Concomitant]
     Route: 065
  4. SODIUM FERRIC GLUCONATE COMPLEX [Concomitant]
     Route: 065
  5. VITAMIN D [Concomitant]
     Route: 048

REACTIONS (2)
  - ANGINA UNSTABLE [None]
  - SYNCOPE [None]
